FAERS Safety Report 13723121 (Version 2)
Quarter: 2017Q4

REPORT INFORMATION
  Report Type: Spontaneous
  Country: FR (occurrence: FR)
  Receive Date: 20170706
  Receipt Date: 20171016
  Transmission Date: 20180320
  Serious: Yes (Other)
  Sender: FDA-Public Use
  Company Number: FR-BAYER-2017-128727

PATIENT
  Age: 34 Year
  Sex: Female

DRUGS (1)
  1. MIRENA [Suspect]
     Active Substance: LEVONORGESTREL
     Indication: CONTRACEPTION
     Dosage: 20 MCG/24HR, CONT
     Route: 015
     Dates: start: 20110301, end: 20170524

REACTIONS (9)
  - Alopecia [Recovering/Resolving]
  - Abdominal distension [Recovering/Resolving]
  - Asthenia [Recovered/Resolved]
  - Aggression [Recovered/Resolved]
  - Headache [Recovered/Resolved]
  - Visual acuity reduced [Not Recovered/Not Resolved]
  - Hypertrichosis [Recovered/Resolved]
  - Loss of libido [Recovering/Resolving]
  - Abdominal discomfort [Recovered/Resolved]

NARRATIVE: CASE EVENT DATE: 201203
